FAERS Safety Report 5570833-7 (Version None)
Quarter: 2007Q4

REPORT INFORMATION
  Report Type: 
  Country: None (occurrence: None)
  Receive Date: 20071221
  Receipt Date: 20071213
  Transmission Date: 20080405
  Serious: Yes (Hospitalization, Other)
  Sender: FDA-Public Use
  Company Number: US-ELI_LILLY_AND_COMPANY-US200711006117

PATIENT
  Sex: Female

DRUGS (2)
  1. FORTEO [Suspect]
     Indication: OSTEOPOROSIS
     Dates: start: 20070920, end: 20071017
  2. IRON [Concomitant]
     Indication: BLOOD COUNT ABNORMAL

REACTIONS (9)
  - ALTERED STATE OF CONSCIOUSNESS [None]
  - EYE SWELLING [None]
  - FACE INJURY [None]
  - FALL [None]
  - HAEMORRHAGE INTRACRANIAL [None]
  - MEMORY IMPAIRMENT [None]
  - MOBILITY DECREASED [None]
  - UPPER LIMB FRACTURE [None]
  - VISUAL ACUITY REDUCED [None]
